FAERS Safety Report 5367070-8 (Version None)
Quarter: 2007Q2

REPORT INFORMATION
  Report Type: 
  Country: None (occurrence: None)
  Receive Date: 20070622
  Receipt Date: 20070615
  Transmission Date: 20071010
  Serious: Yes (Hospitalization)
  Sender: FDA-Public Use
  Company Number: B0475661A

PATIENT
  Age: 72 Year
  Sex: Female

DRUGS (3)
  1. AUGMENTIN '125' [Suspect]
     Dosage: 3G PER DAY
     Route: 042
     Dates: start: 20070503, end: 20070506
  2. OFLOCET [Suspect]
     Dosage: 400MG PER DAY
     Route: 042
     Dates: start: 20070503, end: 20070509
  3. GEMZAR [Concomitant]
     Indication: METASTASES TO PERITONEUM
     Route: 065
     Dates: start: 20070401

REACTIONS (3)
  - HYPOTENSION [None]
  - PYREXIA [None]
  - URTICARIA [None]
